FAERS Safety Report 5662257-9 (Version None)
Quarter: 2008Q1

REPORT INFORMATION
  Report Type: 
  Country: None (occurrence: None)
  Receive Date: 20080312
  Receipt Date: 20080215
  Transmission Date: 20080703
  Serious: Yes (Hospitalization)
  Sender: FDA-Public Use
  Company Number: FR-PFIZER INC-2008005764

PATIENT
  Sex: Female

DRUGS (5)
  1. VIRACEPT [Suspect]
     Route: 048
  2. COMBIVIR [Suspect]
     Route: 048
     Dates: end: 20040520
  3. KALETRA [Suspect]
     Route: 048
  4. RETROVIR [Suspect]
     Indication: HIV INFECTION
  5. VIREAD [Suspect]
     Route: 048

REACTIONS (3)
  - ANAEMIA [None]
  - DRUG EXPOSURE DURING PREGNANCY [None]
  - GLUCOSE-6-PHOSPHATE DEHYDROGENASE DEFICIENCY [None]
